FAERS Safety Report 11806455 (Version 1)
Quarter: 2015Q4

REPORT INFORMATION
  Report Type: Spontaneous
  Country: TW (occurrence: TW)
  Receive Date: 20151207
  Receipt Date: 20151207
  Transmission Date: 20160305
  Serious: Yes (Hospitalization, Other)
  Sender: FDA-Public Use
  Company Number: TW-IPCA LABORATORIES LIMITED-IPC201511-000803

PATIENT
  Age: 31 Year
  Sex: Female

DRUGS (5)
  1. PREDNISOLONE. [Concomitant]
     Active Substance: PREDNISOLONE
  2. COLCHICINE. [Concomitant]
     Active Substance: COLCHICINE
  3. BENZBROMARONE [Concomitant]
     Active Substance: BENZBROMARONE
  4. ALLOPURINOL. [Concomitant]
     Active Substance: ALLOPURINOL
  5. FUROSEMIDE. [Suspect]
     Active Substance: FUROSEMIDE
     Indication: WEIGHT CONTROL

REACTIONS (11)
  - Hypovolaemia [Unknown]
  - Malaise [Unknown]
  - Tubulointerstitial nephritis [Recovered/Resolved]
  - Gouty arthritis [Unknown]
  - Nephrolithiasis [Unknown]
  - Drug abuse [Unknown]
  - Nephropathy toxic [Recovered/Resolved]
  - Hyperuricaemia [Unknown]
  - Drug dependence [Unknown]
  - Hypokalaemia [Recovered/Resolved]
  - Pyelonephritis acute [Recovered/Resolved]
